FAERS Safety Report 4302804-2 (Version None)
Quarter: 2004Q1

REPORT INFORMATION
  Report Type: 
  Country: None (occurrence: None)
  Receive Date: 20040220
  Receipt Date: 20040204
  Transmission Date: 20041129
  Serious: Yes (Life-Threatening)
  Sender: FDA-Public Use
  Company Number: A-US2004-05028

PATIENT
  Age: 59 Year
  Sex: Female
  Weight: 83.9 kg

DRUGS (2)
  1. TRACLEER [Suspect]
     Indication: PULMONARY HYPERTENSION
     Dosage: 125 MG, BID, ORAL;  62.5 MG, BID,
     Route: 048
     Dates: start: 20030203, end: 20040119
  2. FLOLAN [Concomitant]

REACTIONS (4)
  - ANAEMIA [None]
  - ASCITES [None]
  - HYPOTENSION [None]
  - THROMBOCYTOPENIA [None]
